FAERS Safety Report 9981196 (Version 1)
Quarter: 2014Q1

REPORT INFORMATION
  Report Type: Spontaneous
  Country: US (occurrence: None)
  Receive Date: 20140306
  Receipt Date: 20140306
  Transmission Date: 20141002
  Serious: Yes (Disabling, Other)
  Sender: FDA-Public Use
  Company Number: None

PATIENT
  Sex: 0

DRUGS (1)
  1. METOPROLOL TARTRATE [Suspect]
     Indication: HYPERTENSION
     Route: 048
     Dates: start: 20140127, end: 20140204

REACTIONS (5)
  - Myocardial infarction [None]
  - Hallucination [None]
  - Anxiety [None]
  - Insomnia [None]
  - Feeling abnormal [None]
